FAERS Safety Report 12208886 (Version 1)
Quarter: 2016Q1

REPORT INFORMATION
  Report Type: Spontaneous
  Country: US (occurrence: US)
  Receive Date: 20160324
  Receipt Date: 20160324
  Transmission Date: 20160526
  Serious: No
  Sender: FDA-Public Use
  Company Number: US-SHIONOGI, INC-2015001293

PATIENT
  Age: 53 Year
  Sex: Female

DRUGS (4)
  1. ADDERALL [Concomitant]
     Active Substance: AMPHETAMINE ASPARTATE\AMPHETAMINE SULFATE\DEXTROAMPHETAMINE SACCHARATE\DEXTROAMPHETAMINE SULFATE
     Indication: ATTENTION DEFICIT/HYPERACTIVITY DISORDER
     Dosage: UNK
     Route: 065
  2. XANAX [Concomitant]
     Active Substance: ALPRAZOLAM
     Indication: SLEEP DISORDER
     Dosage: UNK
     Route: 065
  3. OSPHENA [Suspect]
     Active Substance: OSPEMIFENE
     Indication: LICHEN SCLEROSUS
     Dosage: 60 MG, QD
     Route: 048
     Dates: start: 20151209
  4. OSPHENA [Suspect]
     Active Substance: OSPEMIFENE
     Indication: OFF LABEL USE

REACTIONS (3)
  - Breast pain [Recovered/Resolved]
  - Labelled drug-food interaction medication error [Unknown]
  - Off label use [Unknown]

NARRATIVE: CASE EVENT DATE: 20151209
